FAERS Safety Report 4878483-2 (Version None)
Quarter: 2006Q1

REPORT INFORMATION
  Report Type: 
  Country: None (occurrence: None)
  Receive Date: 20060110
  Receipt Date: 20051228
  Transmission Date: 20060701
  Serious: Yes (Other)
  Sender: FDA-Public Use
  Company Number: HQWYE127322DEC05

PATIENT
  Sex: Male

DRUGS (3)
  1. EFFEXOR XR [Suspect]
     Indication: STRESS
     Dosage: 150 MG 1X PER 1 DAY
     Dates: start: 20021101
  2. MIRTAZAPINE [Concomitant]
  3. ALPRAZOLAM [Concomitant]

REACTIONS (3)
  - CAROTID ARTERY DISSECTION [None]
  - CONDITION AGGRAVATED [None]
  - HYPERTENSION [None]
